FAERS Safety Report 8050733-3 (Version None)
Quarter: 2012Q1

REPORT INFORMATION
  Report Type: 
  Country: None (occurrence: None)
  Receive Date: 20120117
  Receipt Date: 20120117
  Transmission Date: 20120608
  Serious: Yes (Life-Threatening, Hospitalization)
  Sender: FDA-Public Use
  Company Number: None

PATIENT
  Age: 62 Year
  Sex: Male

DRUGS (1)
  1. DABIGATRAN [Suspect]
     Dosage: 150 MG
     Route: 048
     Dates: start: 20101101, end: 20110201

REACTIONS (1)
  - HAEMORRHAGE INTRACRANIAL [None]
